FAERS Safety Report 4380880-9 (Version None)
Quarter: 2004Q2

REPORT INFORMATION
  Report Type: 
  Country: None (occurrence: None)
  Receive Date: 20040616
  Receipt Date: 20040604
  Transmission Date: 20050107
  Serious: Yes (Hospitalization)
  Sender: FDA-Public Use
  Company Number: 03P-028-0240518-00

PATIENT
  Age: 27 Year
  Sex: Male
  Weight: 82 kg

DRUGS (6)
  1. HUMIRA [Suspect]
     Indication: CROHN'S DISEASE
     Dosage: 1 IN 2 WK, SUBCUTANEOUS; 50 MG, 3 IN 1 WK
     Route: 058
     Dates: start: 20031001, end: 20031017
  2. ONERCEPT [Concomitant]
  3. PENTASA [Concomitant]
  4. PREDNISONE [Concomitant]
  5. BUDESONIDE [Concomitant]
  6. AZATHIOPRINE [Concomitant]

REACTIONS (9)
  - COUGH [None]
  - CROHN'S DISEASE [None]
  - DRUG INEFFECTIVE [None]
  - DRUG INTOLERANCE [None]
  - FEELING ABNORMAL [None]
  - INFLUENZA LIKE ILLNESS [None]
  - INTERNATIONAL NORMALISED RATIO INCREASED [None]
  - PERITONEAL ABSCESS [None]
  - PYREXIA [None]
